FAERS Safety Report 14127015 (Version 1)
Quarter: 2017Q4

REPORT INFORMATION
  Report Type: Spontaneous
  Country: US (occurrence: US)
  Receive Date: 20171026
  Receipt Date: 20171026
  Transmission Date: 20180321
  Serious: Yes (Hospitalization, Other)
  Sender: FDA-Public Use
  Company Number: US-UCBSA-2017042425

PATIENT
  Age: 28 Year
  Sex: Female

DRUGS (6)
  1. COENZYME Q10 [Concomitant]
     Active Substance: UBIDECARENONE
     Indication: MELAS SYNDROME
     Dosage: UNKNOWN DOSE
  2. LEVETIRACETAM. [Suspect]
     Active Substance: LEVETIRACETAM
     Indication: MELAS SYNDROME
     Dosage: UNKNOWN DOSE
  3. TOPIRAMATE. [Concomitant]
     Active Substance: TOPIRAMATE
     Indication: SEIZURE
     Dosage: UNKNOWN DOSE
  4. LEVETIRACETAM. [Suspect]
     Active Substance: LEVETIRACETAM
     Indication: OFF LABEL USE
  5. L-CARNITINE [Concomitant]
     Active Substance: LEVOCARNITINE
     Indication: MELAS SYNDROME
     Dosage: UNKNOWN DOSE
  6. ACYCLOVIR. [Concomitant]
     Active Substance: ACYCLOVIR
     Indication: PRODUCT USED FOR UNKNOWN INDICATION
     Dosage: UNKNOWN DOSE

REACTIONS (8)
  - Vision blurred [Unknown]
  - Diplopia [Unknown]
  - Joint lock [Unknown]
  - Migraine [Unknown]
  - Consciousness fluctuating [Unknown]
  - Off label use [Unknown]
  - Seizure [Recovered/Resolved]
  - MELAS syndrome [Recovered/Resolved]
